FAERS Safety Report 20703398 (Version 1)
Quarter: 2022Q2

REPORT INFORMATION
  Report Type: Report from Study
  Country: US (occurrence: US)
  Receive Date: 20220413
  Receipt Date: 20220413
  Transmission Date: 20220720
  Serious: Yes (Hospitalization)
  Sender: FDA-Public Use
  Company Number: US-JNJFOC-20220408061

PATIENT
  Age: 23 Year
  Sex: Male

DRUGS (27)
  1. INFLIXIMAB [Suspect]
     Active Substance: INFLIXIMAB
     Indication: Inflammatory bowel disease
     Route: 042
     Dates: start: 20120425, end: 20190314
  2. HUMIRA [Concomitant]
     Active Substance: ADALIMUMAB
     Dosage: CONTINUED (DATE OF LAST ADMINISTRATION PRIOR TO THE EVENT APR-2021 (LOGLINE 53), JUN-2021 (LOGLINE
     Route: 065
     Dates: start: 20190926
  3. ENTYVIO [Concomitant]
     Active Substance: VEDOLIZUMAB
     Dates: start: 20210222, end: 202103
  4. VITAMIN C [Concomitant]
     Active Substance: ASCORBIC ACID
  5. ERGOCALCIFEROL [Concomitant]
     Active Substance: ERGOCALCIFEROL
  6. METOCLOPRAMIDE [Concomitant]
     Active Substance: METOCLOPRAMIDE
  7. FAMOTIDINE [Concomitant]
     Active Substance: FAMOTIDINE
  8. FERROUS SULFATE [Concomitant]
     Active Substance: FERROUS SULFATE
  9. ONDANSETRON [Concomitant]
     Active Substance: ONDANSETRON
  10. PERCOCET [Concomitant]
     Active Substance: ACETAMINOPHEN\OXYCODONE HYDROCHLORIDE
  11. AMITRIPTYLINE [Concomitant]
     Active Substance: AMITRIPTYLINE
  12. ZINC SULFATE [Concomitant]
     Active Substance: ZINC SULFATE
  13. PREDNISONE [Concomitant]
     Active Substance: PREDNISONE
  14. METHOTREXATE [Concomitant]
     Active Substance: METHOTREXATE
  15. FOLIC ACID [Concomitant]
     Active Substance: FOLIC ACID
  16. TOFACITINIB [Concomitant]
     Active Substance: TOFACITINIB
  17. LOPERAMIDE [Concomitant]
     Active Substance: LOPERAMIDE
  18. GABAPENTIN [Concomitant]
     Active Substance: GABAPENTIN
  19. SULFAMETHOXAZOLE [Concomitant]
     Active Substance: SULFAMETHOXAZOLE
  20. SIMETHICONE (DIMETHICONE) [Concomitant]
     Active Substance: DIMETHICONE
  21. CLINDAMYCIN PHOSPHATE [Concomitant]
     Active Substance: CLINDAMYCIN PHOSPHATE
  22. BENZOYL PEROXIDE [Concomitant]
     Active Substance: BENZOYL PEROXIDE
  23. KETOKONAZOLE HASCO [Concomitant]
  24. HYDROMORPHONE HCL [Concomitant]
     Active Substance: HYDROMORPHONE HYDROCHLORIDE
  25. DOXYCYCLINE HYCLATE [Concomitant]
     Active Substance: DOXYCYCLINE HYCLATE
  26. PREGABALIN [Concomitant]
     Active Substance: PREGABALIN
  27. SULFAMETHOXAZOLE\TRIMETHOPRIM [Concomitant]
     Active Substance: SULFAMETHOXAZOLE\TRIMETHOPRIM

REACTIONS (3)
  - Abdominal pain [Recovered/Resolved]
  - Crohn^s disease [Recovered/Resolved]
  - Proctalgia [Recovered/Resolved]

NARRATIVE: CASE EVENT DATE: 20210427
